FAERS Safety Report 12091027 (Version 1)
Quarter: 2016Q1

REPORT INFORMATION
  Report Type: Spontaneous
  Country: IT (occurrence: IT)
  Receive Date: 20160218
  Receipt Date: 20160218
  Transmission Date: 20160526
  Serious: Yes (Other)
  Sender: FDA-Public Use
  Company Number: IT-ELI_LILLY_AND_COMPANY-IT201602004117

PATIENT
  Age: 38 Year
  Sex: Female
  Weight: 46 kg

DRUGS (3)
  1. CAPECITABINE. [Concomitant]
     Active Substance: CAPECITABINE
     Indication: PRODUCT USED FOR UNKNOWN INDICATION
     Dosage: 2800 MG, UNKNOWN
     Route: 048
  2. ERBITUX [Suspect]
     Active Substance: CETUXIMAB
     Indication: COLON CANCER
     Dosage: 350 MG, CYCLICAL
     Route: 042
     Dates: start: 20151026, end: 20151102
  3. OXALIPLATINUM [Concomitant]
     Active Substance: OXALIPLATIN
     Indication: PRODUCT USED FOR UNKNOWN INDICATION
     Dosage: 180 MG, UNKNOWN

REACTIONS (5)
  - Dry skin [Recovering/Resolving]
  - Hyperaesthesia [Recovering/Resolving]
  - Asthenia [Recovering/Resolving]
  - Paraesthesia [Recovering/Resolving]
  - Dysphagia [Recovering/Resolving]

NARRATIVE: CASE EVENT DATE: 20151102
